FAERS Safety Report 12336428 (Version 1)
Quarter: 2016Q2

REPORT INFORMATION
  Report Type: Spontaneous
  Country: NO (occurrence: NO)
  Receive Date: 20160505
  Receipt Date: 20160505
  Transmission Date: 20160815
  Serious: Yes (Death)
  Sender: FDA-Public Use
  Company Number: NO-ACCORD-040311

PATIENT
  Age: 52 Year
  Sex: Male

DRUGS (8)
  1. AMITRIPTYLINE [Suspect]
     Active Substance: AMITRIPTYLINE
  2. OXAZEPAM. [Suspect]
     Active Substance: OXAZEPAM
  3. PARACETAMOL [Suspect]
     Active Substance: ACETAMINOPHEN
  4. CODEINE [Suspect]
     Active Substance: CODEINE
  5. NORTRIPTYLINE [Suspect]
     Active Substance: NORTRIPTYLINE
  6. CARISOPRODOL. [Suspect]
     Active Substance: CARISOPRODOL
  7. MEPROBAMATE. [Suspect]
     Active Substance: MEPROBAMATE
  8. IBUPROFEN. [Suspect]
     Active Substance: IBUPROFEN

REACTIONS (1)
  - Toxicity to various agents [Fatal]
